FAERS Safety Report 15435588 (Version 3)
Quarter: 2018Q4

REPORT INFORMATION
  Report Type: Report from Study
  Country: JP (occurrence: JP)
  Receive Date: 20180927
  Receipt Date: 20181018
  Transmission Date: 20190204
  Serious: Yes (Other)
  Sender: FDA-Public Use
  Company Number: JP-TEVA-2018-JP-957103

PATIENT
  Age: 81 Year
  Sex: Male

DRUGS (4)
  1. CLOPIDOGREL [Suspect]
     Active Substance: CLOPIDOGREL BISULFATE
     Indication: EMBOLIC STROKE
     Route: 065
  2. HEPARIN [Suspect]
     Active Substance: HEPARIN SODIUM
     Indication: EMBOLIC STROKE
     Route: 042
  3. WARFARIN [Suspect]
     Active Substance: WARFARIN
     Indication: EMBOLIC STROKE
     Route: 065
  4. ASPIRIN. [Suspect]
     Active Substance: ASPIRIN
     Indication: EMBOLIC STROKE
     Route: 065

REACTIONS (1)
  - Haematuria [Unknown]
